FAERS Safety Report 16720308 (Version 1)
Quarter: 2019Q3

REPORT INFORMATION
  Report Type: Spontaneous
  Country: CN (occurrence: CN)
  Receive Date: 20190820
  Receipt Date: 20190820
  Transmission Date: 20191005
  Serious: Yes (Other)
  Sender: FDA-Public Use
  Company Number: CN-PFIZER INC-2019355114

PATIENT
  Age: 8 Day
  Sex: Male
  Weight: 3.4 kg

DRUGS (1)
  1. CEFOPERAZONE SODIUM [Suspect]
     Active Substance: CEFOPERAZONE SODIUM
     Indication: PNEUMONIA
     Dosage: 0.15 G, 2X/DAY
     Route: 041
     Dates: start: 20190804, end: 20190813

REACTIONS (2)
  - Myocardial necrosis marker increased [Recovering/Resolving]
  - Heart injury [Recovering/Resolving]

NARRATIVE: CASE EVENT DATE: 20190809
